FAERS Safety Report 9224619 (Version 1)
Quarter: 2013Q2

REPORT INFORMATION
  Report Type: Spontaneous
  Country: US (occurrence: None)
  Receive Date: 20130411
  Receipt Date: 20130411
  Transmission Date: 20140414
  Serious: Yes (Hospitalization)
  Sender: FDA-Public Use
  Company Number: None

PATIENT
  Age: 87 Year
  Sex: Female

DRUGS (26)
  1. WARFARIN 7 AND 5 MG N/A [Suspect]
     Route: 048
     Dates: start: 20060301, end: 20061231
  2. HAWTHORN [Concomitant]
  3. TUMERIC [Concomitant]
  4. ASHWAGANDHA [Concomitant]
  5. CRANBERRY [Concomitant]
  6. DUONEB [Concomitant]
  7. TYLENOL [Concomitant]
  8. BENADRYL [Concomitant]
  9. MULTIVITAMIN [Concomitant]
  10. NYSTATIN SWISH AND SWALLOW [Concomitant]
  11. FORTEO [Concomitant]
  12. FLOMAX [Concomitant]
  13. LASIX [Concomitant]
  14. DILTIAZEM [Concomitant]
  15. ACIPHEX [Concomitant]
  16. MAGNESIUM OXIDE [Concomitant]
  17. CALCIUM [Concomitant]
  18. IRON SUPPLEMENT [Concomitant]
  19. DANDELION [Concomitant]
  20. HORSE CHESTNUT [Concomitant]
  21. BUTCHER^S BROOM [Concomitant]
  22. BILBERRY [Concomitant]
  23. GINSENG [Concomitant]
  24. GINKGO BILOBA [Concomitant]
  25. ECHINACEA [Concomitant]
  26. GINGER [Concomitant]

REACTIONS (7)
  - Petechiae [None]
  - Urticaria [None]
  - Chronic obstructive pulmonary disease [None]
  - Pneumonia [None]
  - Haemoptysis [None]
  - Epistaxis [None]
  - Haemorrhage [None]
